FAERS Safety Report 5279726-6 (Version None)
Quarter: 2007Q1

REPORT INFORMATION
  Report Type: 
  Country: None (occurrence: None)
  Receive Date: 20061213
  Receipt Date: 20060607
  Transmission Date: 20070707
  Serious: No
  Sender: FDA-Public Use
  Company Number: 2006UW12086

PATIENT
  Age: 15 Year
  Sex: Female
  Weight: 129.2752 kg

DRUGS (3)
  1. SEROQUEL [Suspect]
     Dosage: 800 MG DAILY PO
     Route: 048
  2. HALDOL [Concomitant]
  3. ABILIFY [Concomitant]

REACTIONS (2)
  - DIABETES MELLITUS NON-INSULIN-DEPENDENT [None]
  - WEIGHT INCREASED [None]
